FAERS Safety Report 13892028 (Version 1)
Quarter: 2017Q3

REPORT INFORMATION
  Report Type: Spontaneous
  Country: US (occurrence: US)
  Receive Date: 20170822
  Receipt Date: 20170822
  Transmission Date: 20171127
  Serious: No
  Sender: FDA-Public Use
  Company Number: US-JNJFOC-20170800078

PATIENT
  Age: 80 Year
  Sex: Female
  Weight: 76.66 kg

DRUGS (2)
  1. VELCADE [Concomitant]
     Active Substance: BORTEZOMIB
     Indication: PRODUCT USED FOR UNKNOWN INDICATION
  2. DARZALEX [Suspect]
     Active Substance: DARATUMUMAB
     Indication: PLASMA CELL MYELOMA
     Route: 042
     Dates: start: 201705

REACTIONS (3)
  - Infusion related reaction [Unknown]
  - Flushing [Unknown]
  - Cough [Unknown]

NARRATIVE: CASE EVENT DATE: 201705
